FAERS Safety Report 16571115 (Version 1)
Quarter: 2019Q3

REPORT INFORMATION
  Report Type: Spontaneous
  Country: US (occurrence: US)
  Receive Date: 20190531
  Receipt Date: 20190531
  Transmission Date: 20191004
  Serious: Yes (Hospitalization)
  Sender: FDA-Public Use
  Company Number: None

PATIENT
  Age: 62 Year
  Sex: Male
  Weight: 97 kg

DRUGS (1)
  1. WARFARIN [Suspect]
     Active Substance: WARFARIN
     Indication: HEPATIC ARTERY THROMBOSIS
     Route: 048
     Dates: start: 20180319, end: 20181210

REACTIONS (5)
  - Penile pain [None]
  - Bladder spasm [None]
  - Haematuria [None]
  - Blood loss anaemia [None]
  - Urinary retention [None]

NARRATIVE: CASE EVENT DATE: 20181205
